FAERS Safety Report 7866213-1 (Version None)
Quarter: 2011Q4

REPORT INFORMATION
  Report Type: 
  Country: None (occurrence: None)
  Receive Date: 20111028
  Receipt Date: 20110512
  Transmission Date: 20120403
  Serious: Yes (Other)
  Sender: FDA-Public Use
  Company Number: US-GLAXOSMITHKLINE-A0927147A

PATIENT
  Age: 67 Year
  Sex: Female

DRUGS (7)
  1. DIGOXIN [Concomitant]
  2. MULTI-VITAMIN [Concomitant]
  3. BLOOD PRESSURE MEDICATION [Concomitant]
  4. PREDNISONE [Concomitant]
  5. VITAMIN B-12 [Concomitant]
  6. ADVAIR DISKUS 100/50 [Suspect]
     Indication: CHRONIC OBSTRUCTIVE PULMONARY DISEASE
     Dosage: 1PUFF TWICE PER DAY
     Route: 055
     Dates: start: 20100701
  7. VITAMIN D [Concomitant]

REACTIONS (2)
  - CATARACT [None]
  - VISION BLURRED [None]
